FAERS Safety Report 9107532 (Version 3)
Quarter: 2013Q1

REPORT INFORMATION
  Report Type: Spontaneous
  Country: US (occurrence: US)
  Receive Date: 20130221
  Receipt Date: 20130320
  Transmission Date: 20140127
  Serious: Yes (Hospitalization, Other)
  Sender: FDA-Public Use
  Company Number: US-ASTRAZENECA-2013SE10088

PATIENT
  Age: 69 Year
  Sex: Female
  Weight: 64.4 kg

DRUGS (5)
  1. NEXIUM [Suspect]
     Indication: GASTROOESOPHAGEAL REFLUX DISEASE
     Route: 048
  2. NEXIUM [Suspect]
     Indication: GASTROOESOPHAGEAL REFLUX DISEASE
     Route: 048
  3. ARIMIDEX [Suspect]
     Route: 048
  4. OMEPRAZOLE [Suspect]
     Route: 048
  5. CANCER MEDICATION [Suspect]
     Indication: NEOPLASM MALIGNANT
     Route: 065

REACTIONS (6)
  - Neoplasm malignant [Unknown]
  - Abdominal pain upper [Unknown]
  - Bone pain [Unknown]
  - Abdominal discomfort [Unknown]
  - Nausea [Unknown]
  - Vomiting [Unknown]
